FAERS Safety Report 4431068-4 (Version None)
Quarter: 2004Q3

REPORT INFORMATION
  Report Type: 
  Country: None (occurrence: None)
  Receive Date: 20040818
  Receipt Date: 20040802
  Transmission Date: 20050211
  Serious: Yes (Other)
  Sender: FDA-Public Use
  Company Number: USA040874308

PATIENT
  Age: 35 Year
  Sex: Female
  Weight: 273 kg

DRUGS (1)
  1. XIGRIS [Suspect]
     Indication: SEPTIC SHOCK
     Dosage: 24 UG/KG/HR
     Dates: start: 20040729, end: 20040801

REACTIONS (6)
  - CELLULITIS [None]
  - CONDITION AGGRAVATED [None]
  - GENERAL PHYSICAL HEALTH DETERIORATION [None]
  - ILL-DEFINED DISORDER [None]
  - RENAL DISORDER [None]
  - SEPTIC SHOCK [None]
